FAERS Safety Report 19991297 (Version 3)
Quarter: 2021Q4

REPORT INFORMATION
  Report Type: Spontaneous
  Country: US (occurrence: US)
  Receive Date: 20211025
  Receipt Date: 20211211
  Transmission Date: 20220304
  Serious: Yes (Hospitalization, Other)
  Sender: FDA-Public Use
  Company Number: US-JNJFOC-20211035051

PATIENT
  Sex: Female

DRUGS (9)
  1. REMICADE [Suspect]
     Active Substance: INFLIXIMAB
     Indication: Product used for unknown indication
     Route: 042
     Dates: end: 2021
  2. HUMIRA [Suspect]
     Active Substance: ADALIMUMAB
     Indication: Colitis ulcerative
     Route: 058
     Dates: start: 2011
  3. HUMIRA [Suspect]
     Active Substance: ADALIMUMAB
     Route: 058
     Dates: start: 2012
  4. HUMIRA [Suspect]
     Active Substance: ADALIMUMAB
     Dosage: 80 MG/0.8 ML, 80 MG INJECT 2 PENS DAY 1, (160 MG,1 IN 1 ONCE),
     Route: 058
     Dates: start: 20211006, end: 20211006
  5. HUMIRA [Suspect]
     Active Substance: ADALIMUMAB
     Dosage: DAY 15 (1 IN 1 D)
     Route: 058
     Dates: start: 20211021, end: 20211021
  6. HUMIRA [Suspect]
     Active Substance: ADALIMUMAB
     Dosage: 40MG/0.4ML
     Route: 058
     Dates: start: 20211119
  7. COVID-19 VACCINE NOS [Concomitant]
     Active Substance: COVID-19 VACCINE NOS
     Indication: COVID-19 immunisation
     Dosage: 1ST DOSE
     Route: 030
     Dates: start: 20210404, end: 20210404
  8. COVID-19 VACCINE NOS [Concomitant]
     Active Substance: COVID-19 VACCINE NOS
     Dosage: 2ND DOSE
     Route: 030
     Dates: start: 20210503, end: 20210503
  9. COVID-19 VACCINE NOS [Concomitant]
     Active Substance: COVID-19 VACCINE NOS
     Route: 030
     Dates: start: 2021, end: 2021

REACTIONS (5)
  - Adverse drug reaction [Unknown]
  - Hypokinesia [Unknown]
  - Colitis ulcerative [Not Recovered/Not Resolved]
  - Arthralgia [Unknown]
  - Latent tuberculosis [Unknown]

NARRATIVE: CASE EVENT DATE: 20210101
